FAERS Safety Report 7898053-1 (Version None)
Quarter: 2011Q4

REPORT INFORMATION
  Report Type: 
  Country: None (occurrence: None)
  Receive Date: 20111103
  Receipt Date: 20111021
  Transmission Date: 20120403
  Serious: Yes (Other)
  Sender: FDA-Public Use
  Company Number: 1000025041

PATIENT
  Age: 80 Year
  Sex: Male
  Weight: 56 kg

DRUGS (2)
  1. MEMANTINE HYDROCHLORIDE [Suspect]
     Dosage: 10 MG (10 MG, L IN 1 D),ORAL
     Route: 048
     Dates: start: 20110314
  2. TRILEPTAL (OXCARBAZEPINE) (OXCARBAZEPINE) [Concomitant]

REACTIONS (1)
  - CHOLESTASIS [None]
